FAERS Safety Report 6491051-4 (Version None)
Quarter: 2009Q4

REPORT INFORMATION
  Report Type: 
  Country: None (occurrence: None)
  Receive Date: 20091208
  Receipt Date: 20091123
  Transmission Date: 20100525
  Serious: No
  Sender: FDA-Public Use
  Company Number: 232053K09USA

PATIENT
  Age: 41 Year
  Sex: Female

DRUGS (1)
  1. REBIF [Suspect]
     Indication: MULTIPLE SCLEROSIS
     Dosage: 44 MCG, 3 IN 1 WEEKS, SUBCUTANEOUS
     Route: 058
     Dates: start: 20080205, end: 20090101

REACTIONS (6)
  - CONTUSION [None]
  - PERIPHERAL COLDNESS [None]
  - RASH PUSTULAR [None]
  - SENSORY LOSS [None]
  - WEIGHT DECREASED [None]
  - YELLOW SKIN [None]
